FAERS Safety Report 12839130 (Version 3)
Quarter: 2017Q1

REPORT INFORMATION
  Report Type: Spontaneous
  Country: US (occurrence: US)
  Receive Date: 20161012
  Receipt Date: 20170112
  Transmission Date: 20170428
  Serious: Yes (Other)
  Sender: FDA-Public Use
  Company Number: US-BAYER-2016-196190

PATIENT
  Sex: Female

DRUGS (10)
  1. CIPROFLOXACIN HCL [Suspect]
     Active Substance: CIPROFLOXACIN HYDROCHLORIDE
     Indication: INFECTION
  2. AMLODIPINE [Concomitant]
     Active Substance: AMLODIPINE BESYLATE
     Indication: BLOOD PRESSURE DECREASED
     Dosage: UNK
     Dates: start: 20160506
  3. AVELOX [Suspect]
     Active Substance: MOXIFLOXACIN HYDROCHLORIDE
     Indication: SINUS PAIN
     Dosage: 400 MG
     Dates: start: 20120303, end: 20120310
  4. LISINOPRIL. [Concomitant]
     Active Substance: LISINOPRIL
     Indication: BLOOD PRESSURE DECREASED
     Dosage: UNK
     Dates: start: 20160506
  5. METOPROLOL. [Concomitant]
     Active Substance: METOPROLOL
     Indication: BLOOD PRESSURE ABNORMAL
     Dosage: 25 MG
  6. AVELOX [Suspect]
     Active Substance: MOXIFLOXACIN HYDROCHLORIDE
     Indication: SINUSITIS
     Dosage: UNK
     Dates: start: 20110307
  7. TOPROL XL [Concomitant]
     Active Substance: METOPROLOL SUCCINATE
     Indication: BLOOD PRESSURE DECREASED
     Dosage: UNK
     Dates: start: 20160506
  8. AVELOX [Suspect]
     Active Substance: MOXIFLOXACIN HYDROCHLORIDE
     Indication: INFECTION
     Dosage: UNK
     Dates: start: 201304
  9. CIPROFLOXACIN HCL [Suspect]
     Active Substance: CIPROFLOXACIN HYDROCHLORIDE
     Indication: ACUTE SINUSITIS
     Dosage: 250 MG
     Dates: start: 20120227, end: 20120301
  10. CHLORTHALIDONE. [Concomitant]
     Active Substance: CHLORTHALIDONE
     Indication: BLOOD PRESSURE DECREASED
     Dosage: UNK
     Dates: start: 20110613, end: 20140628

REACTIONS (10)
  - Injury [None]
  - Musculoskeletal injury [None]
  - Rash [None]
  - Mental disorder [None]
  - Myalgia [None]
  - Neuropathy peripheral [None]
  - Skin injury [None]
  - Arthralgia [None]
  - Cardiovascular disorder [None]
  - Nervous system disorder [None]
